FAERS Safety Report 24882316 (Version 1)
Quarter: 2025Q1

REPORT INFORMATION
  Report Type: Spontaneous
  Country: US (occurrence: US)
  Receive Date: 20250124
  Receipt Date: 20250124
  Transmission Date: 20250408
  Serious: No
  Sender: NOBELPHARMA AMERICA, LLC
  Company Number: US-Nobelpharma America, LLC-NPA-2025-00039

PATIENT
  Age: 10 Year
  Sex: Male
  Weight: 42 kg

DRUGS (5)
  1. HYFTOR [Suspect]
     Active Substance: SIROLIMUS
     Indication: Angiofibroma
     Route: 003
     Dates: start: 20240815
  2. HYFTOR [Suspect]
     Active Substance: SIROLIMUS
     Indication: Tuberous sclerosis complex
  3. AFINITOR [Concomitant]
     Active Substance: EVEROLIMUS
  4. EPIDIOLEX [Concomitant]
     Active Substance: CANNABIDIOL
  5. EVEROLIMUS [Concomitant]
     Active Substance: EVEROLIMUS

REACTIONS (1)
  - Rash [Unknown]

NARRATIVE: CASE EVENT DATE: 20250109
